FAERS Safety Report 6769299-0 (Version None)
Quarter: 2010Q2

REPORT INFORMATION
  Report Type: 
  Country: None (occurrence: None)
  Receive Date: 20100615
  Receipt Date: 20100604
  Transmission Date: 20101027
  Serious: Yes (Other)
  Sender: FDA-Public Use
  Company Number: US-ELI_LILLY_AND_COMPANY-US201005004467

PATIENT
  Sex: Male

DRUGS (4)
  1. BYETTA [Suspect]
     Indication: TYPE 2 DIABETES MELLITUS
     Dosage: 5 UG, 2/D
     Dates: start: 20070228, end: 20070319
  2. BYETTA [Suspect]
     Dosage: 10 UG, 2/D
     Dates: start: 20070320, end: 20091201
  3. GLIPIZIDE [Concomitant]
     Dates: start: 19920101, end: 20070301
  4. METFORMIN HCL [Concomitant]
     Dates: start: 19950101, end: 20091101

REACTIONS (1)
  - PANCREATIC CARCINOMA [None]
